FAERS Safety Report 24651875 (Version 2)
Quarter: 2024Q4

REPORT INFORMATION
  Report Type: Spontaneous
  Country: US (occurrence: US)
  Receive Date: 20241122
  Receipt Date: 20241217
  Transmission Date: 20250115
  Serious: No
  Sender: BRISTOL-MYERS SQUIBB COMPANY
  Company Number: US-BRISTOL-MYERS SQUIBB COMPANY-2024-181842

PATIENT
  Age: 88 Year
  Sex: Male
  Weight: 88.5 kg

DRUGS (4)
  1. ELIQUIS [Suspect]
     Active Substance: APIXABAN
     Indication: Atrial fibrillation
     Route: 048
     Dates: start: 20240109, end: 20240313
  2. ELIQUIS [Suspect]
     Active Substance: APIXABAN
     Route: 048
  3. VYNDAMAX [Concomitant]
     Active Substance: TAFAMIDIS
     Indication: Cardiac amyloidosis
     Route: 048
     Dates: start: 20240506, end: 20240605
  4. VYNDAMAX [Concomitant]
     Active Substance: TAFAMIDIS
     Route: 048
     Dates: start: 20230321, end: 20240326

REACTIONS (2)
  - Treatment noncompliance [Unknown]
  - Fatigue [Unknown]
